FAERS Safety Report 19704030 (Version 1)
Quarter: 2021Q3

REPORT INFORMATION
  Report Type: Spontaneous
  Country: RU (occurrence: RU)
  Receive Date: 20210816
  Receipt Date: 20210816
  Transmission Date: 20211014
  Serious: Yes (Congenital Anomaly)
  Sender: FDA-Public Use
  Company Number: RU-HETERO-HET2021RU01578

PATIENT

DRUGS (4)
  1. NARLAPREVIR [Suspect]
     Active Substance: NARLAPREVIR
     Indication: HIV INFECTION
     Dosage: UNK
     Route: 065
     Dates: start: 20200915, end: 20201223
  2. DOLUTEGRAVIR [Suspect]
     Active Substance: DOLUTEGRAVIR
     Indication: HIV INFECTION
     Dosage: 50 MG PER DAY
     Route: 048
     Dates: start: 20200804, end: 20210128
  3. LAMIVUDINE. [Suspect]
     Active Substance: LAMIVUDINE
     Indication: HIV INFECTION
     Dosage: 300 MG, QD
     Route: 048
     Dates: start: 20140620
  4. DACLATASVIR. [Suspect]
     Active Substance: DACLATASVIR
     Indication: HIV INFECTION
     Dosage: UNK
     Route: 065
     Dates: start: 20200915, end: 20201223

REACTIONS (3)
  - Maternal exposure during pregnancy [Unknown]
  - Abortion induced [Unknown]
  - Congenital anomaly [Unknown]

NARRATIVE: CASE EVENT DATE: 20210208
